FAERS Safety Report 8881433 (Version 3)
Quarter: 2014Q2

REPORT INFORMATION
  Report Type: Spontaneous
  Country: US (occurrence: US)
  Receive Date: 20121102
  Receipt Date: 20140505
  Transmission Date: 20141212
  Serious: Yes (Hospitalization)
  Sender: FDA-Public Use
  Company Number: US-BAYER-2012-114474

PATIENT
  Age: 39 Year
  Sex: Female

DRUGS (2)
  1. YASMIN [Suspect]
     Dosage: UNK
     Dates: start: 20021201, end: 200312
  2. VICOPROFEN [Concomitant]

REACTIONS (14)
  - Pneumothorax [None]
  - Gallbladder non-functioning [None]
  - Cholecystitis chronic [None]
  - Biliary dyskinesia [None]
  - Pain [None]
  - Injury [None]
  - General physical health deterioration [None]
  - Anxiety [None]
  - Anhedonia [None]
  - Emotional distress [None]
  - Pain [None]
  - Dyspepsia [None]
  - Eructation [None]
  - Dyspnoea [None]
